FAERS Safety Report 5412613-9 (Version None)
Quarter: 2007Q3

REPORT INFORMATION
  Report Type: 
  Country: None (occurrence: None)
  Receive Date: 20070809
  Receipt Date: 20070730
  Transmission Date: 20080115
  Serious: Yes (Other)
  Sender: FDA-Public Use
  Company Number: CHNY2007DE02608

PATIENT
  Age: 77 Year
  Sex: Female
  Weight: 45 kg

DRUGS (5)
  1. NICOTINE [Suspect]
     Indication: SMOKING CESSATION THERAPY
     Dosage: 21 MG, QD, TRANSDERMAL
     Route: 062
     Dates: start: 20061122, end: 20061124
  2. MORPHINE SULFATE [Concomitant]
  3. TEBONIN (GINKGO BILOBA EXTRACT) [Concomitant]
  4. MST-30 - SLOW RELEASE (MORPHINE SULFATE) [Concomitant]
  5. DICLOFENAC RETARD (DICLOFENAC) [Concomitant]

REACTIONS (4)
  - DRUG INTOLERANCE [None]
  - HYPERHIDROSIS [None]
  - NIGHTMARE [None]
  - PALPITATIONS [None]
